FAERS Safety Report 7581578-6 (Version None)
Quarter: 2011Q2

REPORT INFORMATION
  Report Type: 
  Country: None (occurrence: None)
  Receive Date: 20110629
  Receipt Date: 20110624
  Transmission Date: 20111010
  Serious: Yes (Hospitalization, Other)
  Sender: FDA-Public Use
  Company Number: PHEH2006US01838

PATIENT
  Sex: Female
  Weight: 64.399 kg

DRUGS (46)
  1. OXYCODONE HCL AND ACETAMINOPHEN [Concomitant]
     Dosage: 5-325 MG, PRN
     Route: 048
  2. LISINOPRIL [Concomitant]
     Dosage: 20 MG, QD
     Route: 048
  3. SINGULAIR [Concomitant]
     Dosage: 10 MG, QD
     Route: 048
  4. LUNESTA [Concomitant]
     Dosage: 2 MG, QHS
     Route: 048
  5. HYDROMORPHONE HCL [Concomitant]
  6. MELPHALAN HYDROCHLORIDE [Concomitant]
  7. HYDROCHLOROTHIAZIDE [Concomitant]
     Indication: HYPERTENSION
     Dosage: 25 MG, QD
     Route: 048
  8. DECADRON [Concomitant]
     Indication: PLASMACYTOMA
     Dosage: UNK, UNK
  9. METRONIDAZOLE [Concomitant]
  10. GLUCOPHAGE [Concomitant]
  11. ZOMETA [Suspect]
     Dosage: NOT SPECIFIED
  12. COZAAR [Concomitant]
     Indication: HYPERTENSION
     Dosage: 25 MG, QD
     Route: 048
  13. MORPHINE [Concomitant]
     Dosage: 15 MG, BID
     Route: 048
  14. TERCONAZOLE [Concomitant]
     Dosage: 0.8 %, QHS
     Route: 067
  15. RIBAVIRIN [Concomitant]
  16. CEFAZOLIN [Concomitant]
  17. DOXORUBICIN HCL [Concomitant]
  18. MEGACE [Concomitant]
  19. AREDIA [Suspect]
     Dosage: UNK, UNK
  20. THALIDOMIDE [Concomitant]
     Indication: PLASMACYTOMA
     Dosage: UNK, UNK
  21. POTASSIUM CHLORIDE [Concomitant]
     Dosage: 10 MEQ, QD
     Route: 048
  22. PROMETHAZINE [Concomitant]
     Dosage: 25 MG, PRN
     Route: 048
  23. LASIX [Concomitant]
     Dosage: 20 MG, QD
     Route: 048
  24. ALDACTONE [Concomitant]
  25. ARANESP [Concomitant]
  26. CYCLOBENAZPRINE [Concomitant]
     Dosage: 10 MG, TID
     Route: 048
  27. OXYCODONE HCL [Concomitant]
     Dosage: 5 MG, PRN
     Route: 048
  28. NORVASC [Concomitant]
     Dosage: 10 MG, QD
     Route: 048
  29. BENZONATATE [Concomitant]
     Dosage: 100 MG, TID
     Route: 048
  30. ONDANSETRON [Concomitant]
  31. STEROIDS NOS [Concomitant]
  32. VELCADE [Concomitant]
  33. PEG-INTRON [Concomitant]
     Indication: HEPATITIS C
  34. LEVAQUIN [Concomitant]
     Dosage: 250 MG, QD
     Route: 048
  35. AMOXICILLIN [Concomitant]
     Dosage: 875 MG, TID
     Route: 048
  36. ZITHROMAX [Concomitant]
     Dosage: 250 MG, QD
     Route: 048
  37. METOPROLOL TARTRATE [Concomitant]
     Dosage: 50 MG, BID
     Route: 048
  38. INDERAL [Concomitant]
     Dosage: 80 MG, QD
     Route: 048
  39. NIFEDIAC [Concomitant]
     Dosage: 30 MG, QD
     Route: 048
  40. CIPROFLOXACIN [Concomitant]
     Dosage: 500 MG, BID
     Route: 048
  41. DEXAMETHASONE [Concomitant]
  42. CLINDAMYCIN [Concomitant]
     Dosage: 1 %, TID
     Route: 061
  43. OMEPRAZOLE [Concomitant]
     Dosage: 20 MG, BID
     Route: 048
  44. FAMOTIDINE [Concomitant]
  45. RADIATION THERAPY [Concomitant]
  46. HEPARIN [Concomitant]

REACTIONS (59)
  - INFECTION [None]
  - TOOTH FRACTURE [None]
  - SPONDYLITIS [None]
  - BONE DENSITY DECREASED [None]
  - DYSPHAGIA [None]
  - THROMBOCYTOPENIA [None]
  - GASTROOESOPHAGEAL REFLUX DISEASE [None]
  - DECREASED APPETITE [None]
  - NEPHROPTOSIS [None]
  - THYROID DISORDER [None]
  - OSTEOSCLEROSIS [None]
  - LIVER FUNCTION TEST ABNORMAL [None]
  - OEDEMA PERIPHERAL [None]
  - SOMNOLENCE [None]
  - METASTASES TO BONE [None]
  - ATELECTASIS [None]
  - OSTEONECROSIS OF JAW [None]
  - OSTEOPOROSIS [None]
  - RASH [None]
  - LUNG NEOPLASM [None]
  - HYPERTENSION [None]
  - CARCINOEMBRYONIC ANTIGEN INCREASED [None]
  - HIATUS HERNIA [None]
  - MUSCLE STRAIN [None]
  - MULTIPLE MYELOMA [None]
  - JOINT INJURY [None]
  - BLOOD GLUCOSE INCREASED [None]
  - OSTEOARTHRITIS [None]
  - GASTRITIS [None]
  - DIABETES MELLITUS [None]
  - ABDOMINAL PAIN [None]
  - NEUTROPENIA [None]
  - POLLAKIURIA [None]
  - URINARY INCONTINENCE [None]
  - HAEMATURIA [None]
  - LYMPHADENOPATHY [None]
  - HEPATIC NEOPLASM MALIGNANT [None]
  - SPLENOMEGALY [None]
  - HEPATIC STEATOSIS [None]
  - CONFUSIONAL STATE [None]
  - LEUKOPENIA [None]
  - TRANSAMINASES INCREASED [None]
  - NECROSIS [None]
  - NEUROPATHY PERIPHERAL [None]
  - IMPAIRED GASTRIC EMPTYING [None]
  - DIZZINESS [None]
  - ASCITES [None]
  - HYPOGLYCAEMIA [None]
  - INTERVERTEBRAL DISC DEGENERATION [None]
  - DYSPEPSIA [None]
  - SWELLING FACE [None]
  - RHINITIS ALLERGIC [None]
  - CHOLELITHIASIS [None]
  - HAEMANGIOMA [None]
  - ANAEMIA [None]
  - VARICES OESOPHAGEAL [None]
  - PANCYTOPENIA [None]
  - BACK PAIN [None]
  - DERMATITIS CONTACT [None]
